FAERS Safety Report 9778881 (Version 1)
Quarter: 2013Q4

REPORT INFORMATION
  Report Type: Report from Study
  Country: DE (occurrence: DE)
  Receive Date: 20131223
  Receipt Date: 20131223
  Transmission Date: 20140711
  Serious: Yes (Hospitalization)
  Sender: FDA-Public Use
  Company Number: DE-SHIRE-ALL1-2013-08879

PATIENT
  Sex: Male

DRUGS (4)
  1. IDURSULFASE [Suspect]
     Indication: MUCOPOLYSACCHARIDOSIS II
     Dosage: UNK UNK, UNKNOWN
     Route: 041
     Dates: start: 20060919
  2. TORASEMID [Concomitant]
     Indication: CARDIOVASCULAR DISORDER
     Dosage: 10 MG, 1X/DAY:QD
     Route: 048
     Dates: end: 20070317
  3. TORASEMID [Concomitant]
     Dosage: 5 MG, 1X/DAY:QD
     Route: 048
     Dates: start: 20070317
  4. SALMETEROL [Concomitant]
     Indication: PRODUCT USED FOR UNKNOWN INDICATION
     Dosage: 50 ?G, 2X/DAY:BID
     Route: 055
     Dates: end: 2007

REACTIONS (1)
  - Neurolysis [Unknown]
